FAERS Safety Report 8051818-8 (Version None)
Quarter: 2012Q1

REPORT INFORMATION
  Report Type: 
  Country: None (occurrence: None)
  Receive Date: 20120118
  Receipt Date: 20120109
  Transmission Date: 20120608
  Serious: Yes (Hospitalization, Other)
  Sender: FDA-Public Use
  Company Number: PL-ACCORD-012017

PATIENT
  Age: 72 Year
  Sex: Male

DRUGS (3)
  1. PREDNISONE [Suspect]
     Indication: IMMUNOSUPPRESSION
     Dosage: INITIALLY STARTED WITH SMALL DOSE THEN INCREASED TO 10 MG/DAY
  2. EVEROLIMUS [Suspect]
     Indication: IMMUNOSUPPRESSION
     Dosage: INITALLY 2X1.5 MG THEN REDUCED TO 2X1 MG, THEN INCREASED TO 2X1.75 MG AND THEN TAPERD TO 2X0.75 MG.
  3. MYCOPHENOLATE MOFETIL [Suspect]
     Indication: IMMUNOSUPPRESSION

REACTIONS (2)
  - TUBERCULOSIS [None]
  - PULMONARY EMBOLISM [None]
